FAERS Safety Report 4357944-9 (Version None)
Quarter: 2004Q2

REPORT INFORMATION
  Report Type: 
  Country: None (occurrence: None)
  Receive Date: 20040513
  Receipt Date: 20040513
  Transmission Date: 20050107
  Serious: Yes (Other)
  Sender: FDA-Public Use
  Company Number: None

PATIENT
  Age: 58 Year
  Sex: Female
  Weight: 55.7924 kg

DRUGS (2)
  1. ZOCOR [Suspect]
     Indication: BLOOD CHOLESTEROL INCREASED
     Dosage: 1 PER DAY
     Dates: start: 19980101, end: 19990101
  2. LIPITOR [Suspect]
     Indication: BLOOD CHOLESTEROL INCREASED
     Dosage: LIPITOR 1 PER DAY
     Dates: start: 20040101

REACTIONS (16)
  - ABDOMINAL PAIN UPPER [None]
  - ALOPECIA [None]
  - ARTHRALGIA [None]
  - DIARRHOEA [None]
  - ERYTHEMA [None]
  - FATIGUE [None]
  - FEELING ABNORMAL [None]
  - MARKEDLY REDUCED DIETARY INTAKE [None]
  - MUSCLE TIGHTNESS [None]
  - MUSCULAR WEAKNESS [None]
  - MYALGIA [None]
  - NAUSEA [None]
  - PAIN IN EXTREMITY [None]
  - PRURITUS [None]
  - TEMPOROMANDIBULAR JOINT SYNDROME [None]
  - TRISMUS [None]
